FAERS Safety Report 9282935 (Version 2)
Quarter: 2013Q2

REPORT INFORMATION
  Report Type: Spontaneous
  Country: JP (occurrence: JP)
  Receive Date: 20130510
  Receipt Date: 20130515
  Transmission Date: 20140414
  Serious: Yes (Hospitalization, Other)
  Sender: FDA-Public Use
  Company Number: PHHY2013JP046063

PATIENT
  Age: 74 Year
  Sex: Female

DRUGS (9)
  1. ISONIAZID [Suspect]
     Indication: TUBERCULOUS PLEURISY
     Dosage: 300 MG, DAILY
  2. LEVODOPA [Interacting]
     Indication: DEMENTIA WITH LEWY BODIES
     Dosage: 450 MG, DAILY
  3. LEVODOPA [Interacting]
     Dosage: 50 MG
     Route: 030
  4. LEVODOPA [Interacting]
     Dosage: 600 MG, DAILY
  5. CABERGOLINE [Concomitant]
     Indication: DEMENTIA WITH LEWY BODIES
     Dosage: 1 MG, DAILY
  6. CABERGOLINE [Concomitant]
     Dosage: 1.25 MG, DAILY
  7. PRAMIPEXOLE [Concomitant]
     Indication: DEMENTIA WITH LEWY BODIES
     Dosage: 0.375 MG, DAILY
  8. RIFAMPICIN [Concomitant]
     Indication: TUBERCULOUS PLEURISY
     Dosage: 450 MG, DAILY
  9. ETHAMBUTOL [Concomitant]
     Indication: TUBERCULOUS PLEURISY
     Dosage: 500 MG, DAILY

REACTIONS (9)
  - Parkinsonism [Recovering/Resolving]
  - Gait disturbance [Recovering/Resolving]
  - Nuchal rigidity [Recovering/Resolving]
  - Coordination abnormal [Recovering/Resolving]
  - Dysphagia [Recovering/Resolving]
  - Aphagia [Recovering/Resolving]
  - Dysphonia [Recovering/Resolving]
  - Inhibitory drug interaction [Unknown]
  - Muscle rigidity [Recovering/Resolving]
